FAERS Safety Report 19036004 (Version 1)
Quarter: 2021Q1

REPORT INFORMATION
  Report Type: Spontaneous
  Country: NO (occurrence: NO)
  Receive Date: 20210321
  Receipt Date: 20210321
  Transmission Date: 20210420
  Serious: Yes (Life-Threatening, Hospitalization, Disabling)
  Sender: FDA-Public Use
  Company Number: NVSC2021NO064445

PATIENT
  Age: 51 Year
  Sex: Male
  Weight: 117 kg

DRUGS (2)
  1. HYRIMOZ [Suspect]
     Active Substance: ADALIMUMAB-ADAZ
     Indication: RHEUMATIC DISORDER
     Dosage: 1 DF (1 INJECTION EACH 14TH DAY)
     Route: 058
     Dates: start: 202011, end: 20201230
  2. PREDNISOLON [Concomitant]
     Active Substance: PREDNISOLONE
     Indication: RHEUMATIC DISORDER
     Dosage: UNK
     Route: 065

REACTIONS (7)
  - Condition aggravated [Recovering/Resolving]
  - Arthralgia [Unknown]
  - Peripheral swelling [Unknown]
  - Swelling face [Unknown]
  - Hypokinesia [Unknown]
  - Myalgia [Unknown]
  - Bedridden [Unknown]
